FAERS Safety Report 14668238 (Version 1)
Quarter: 2018Q1

REPORT INFORMATION
  Report Type: Other
  Country: US (occurrence: US)
  Receive Date: 20180322
  Receipt Date: 20180322
  Transmission Date: 20180509
  Serious: Yes (Hospitalization, Other)
  Sender: FDA-Public Use
  Company Number: US-VELOXIS PHARMACEUTICALS-2044312

PATIENT
  Age: 16 Year
  Sex: Female

DRUGS (7)
  1. ENVARSUS XR [Suspect]
     Active Substance: TACROLIMUS
     Dates: start: 20170113, end: 20170216
  2. RITUXIMAB. [Concomitant]
     Active Substance: RITUXIMAB
     Dates: start: 201703
  3. ENVARSUS XR [Suspect]
     Active Substance: TACROLIMUS
     Dates: start: 201703
  4. ENVARSUS XR [Suspect]
     Active Substance: TACROLIMUS
     Indication: HEART TRANSPLANT
     Dates: start: 2017, end: 20170112
  5. RITUXIMAB. [Concomitant]
     Active Substance: RITUXIMAB
     Dates: start: 2002
  6. ENVARSUS XR [Suspect]
     Active Substance: TACROLIMUS
     Dates: start: 20170217, end: 201703
  7. RITUXIMAB. [Concomitant]
     Active Substance: RITUXIMAB
     Dates: start: 201705

REACTIONS (8)
  - Pneumothorax [Unknown]
  - Epstein-Barr virus associated lymphoma [Unknown]
  - Febrile neutropenia [Not Recovered/Not Resolved]
  - Malnutrition [Not Recovered/Not Resolved]
  - Intentional product use issue [Unknown]
  - Neutropenia [Not Recovered/Not Resolved]
  - Drug intolerance [Unknown]
  - Interstitial lung disease [Unknown]

NARRATIVE: CASE EVENT DATE: 201701
